FAERS Safety Report 23645216 (Version 1)
Quarter: 2024Q1

REPORT INFORMATION
  Report Type: Spontaneous
  Country: IT (occurrence: IT)
  Receive Date: 20240318
  Receipt Date: 20240318
  Transmission Date: 20240410
  Serious: Yes (Other)
  Sender: FDA-Public Use
  Company Number: None

PATIENT
  Age: 70 Year
  Sex: Male
  Weight: 82 kg

DRUGS (1)
  1. SYNJARDY [Suspect]
     Active Substance: EMPAGLIFLOZIN\METFORMIN HYDROCHLORIDE
     Indication: Type 2 diabetes mellitus
     Dosage: 2 TABLETS PER DAY
     Route: 048
     Dates: start: 20220322, end: 20221001

REACTIONS (5)
  - Genital haemorrhage [Recovering/Resolving]
  - Pruritus [Not Recovered/Not Resolved]
  - Genital pain [Recovering/Resolving]
  - Pain in extremity [Recovering/Resolving]
  - Polyuria [Recovering/Resolving]

NARRATIVE: CASE EVENT DATE: 20220701
